FAERS Safety Report 7041297-1 (Version None)
Quarter: 2010Q3

REPORT INFORMATION
  Report Type: 
  Country: None (occurrence: None)
  Receive Date: 20100929
  Receipt Date: 20100827
  Transmission Date: 20110219
  Serious: No
  Sender: FDA-Public Use
  Company Number: US-WYE-H17273710

PATIENT
  Age: 63 Year
  Sex: Female
  Weight: 64.47 kg

DRUGS (5)
  1. PRISTIQ (DESVENLAFAXINE SUCCINATE MONOHYDRATE, TABLET, EXTENDED RELEAS [Suspect]
     Indication: ANXIETY
     Dosage: 50 MG 1X PER 1 DAY, ORAL
     Route: 048
     Dates: start: 20100801
  2. PRISTIQ (DESVENLAFAXINE SUCCINATE MONOHYDRATE, TABLET, EXTENDED RELEAS [Suspect]
     Indication: DEPRESSION
     Dosage: 50 MG 1X PER 1 DAY, ORAL
     Route: 048
     Dates: start: 20100801
  3. XANAX [Concomitant]
  4. PREVACID [Concomitant]
  5. TRAZODONE HCL [Concomitant]

REACTIONS (5)
  - DIZZINESS [None]
  - DRUG INEFFECTIVE [None]
  - MOOD ALTERED [None]
  - NERVOUSNESS [None]
  - TREMOR [None]
